FAERS Safety Report 6019575-4 (Version None)
Quarter: 2008Q4

REPORT INFORMATION
  Report Type: 
  Country: None (occurrence: None)
  Receive Date: 20081224
  Receipt Date: 20081216
  Transmission Date: 20090506
  Serious: Yes (Other)
  Sender: FDA-Public Use
  Company Number: PHHY2008FR30664

PATIENT
  Sex: Female

DRUGS (3)
  1. RECLAST [Suspect]
     Indication: OSTEOPOROSIS
     Dosage: 5 MG, ONCE/SINGLE
     Dates: start: 20081127
  2. ACETAMINOPHEN [Concomitant]
     Dosage: 1 G, ONCE/SINGLE
  3. METOPIMAZINE [Concomitant]

REACTIONS (12)
  - DIARRHOEA [None]
  - EYE DISORDER [None]
  - EYE PAIN [None]
  - EYE SWELLING [None]
  - FEAR OF DEATH [None]
  - IRIS ADHESIONS [None]
  - LOSS OF CONSCIOUSNESS [None]
  - MALAISE [None]
  - NAUSEA [None]
  - PAIN IN EXTREMITY [None]
  - UVEITIS [None]
  - VOMITING [None]
